FAERS Safety Report 5822482-0 (Version None)
Quarter: 2008Q3

REPORT INFORMATION
  Report Type: 
  Country: None (occurrence: None)
  Receive Date: 20080722
  Receipt Date: 20080709
  Transmission Date: 20090109
  Serious: Yes (Other)
  Sender: FDA-Public Use
  Company Number: TPH-00048

PATIENT
  Age: 32 Year
  Sex: Female

DRUGS (2)
  1. TRIQUILAR 28 [Suspect]
     Indication: ORAL CONTRACEPTION
     Dosage: 1 DF ORAL
     Route: 048
     Dates: start: 20021015, end: 20070829
  2. ORTHO777-28 [Concomitant]

REACTIONS (1)
  - HYPERTENSIVE ENCEPHALOPATHY [None]
